FAERS Safety Report 8915873 (Version 1)
Quarter: 2012Q4

REPORT INFORMATION
  Report Type: 
  Country: SE (occurrence: SE)
  Receive Date: 20121119
  Receipt Date: 20121119
  Transmission Date: 20130627
  Serious: Yes (Hospitalization, Other)
  Sender: FDA-Public Use
  Company Number: SE-PFIZER INC-2012286289

PATIENT
  Age: 61 Year
  Sex: Male
  Weight: 93 kg

DRUGS (3)
  1. GENOTROPIN [Suspect]
     Dosage: 0.2 mg, 1x/day,7 injections/week
     Route: 058
     Dates: start: 20100205
  2. SIMVASTATIN [Concomitant]
     Indication: HYPERLIPIDEMIA
     Dosage: UNK
     Dates: start: 20090207
  3. TOSTREX [Concomitant]
     Indication: HYPOGONADISM
     Dosage: UNK
     Dates: start: 20090207

REACTIONS (1)
  - Borrelia infection [Unknown]
